FAERS Safety Report 8416044-9 (Version None)
Quarter: 2012Q2

REPORT INFORMATION
  Report Type: 
  Country: None (occurrence: None)
  Receive Date: 20120606
  Receipt Date: 20120522
  Transmission Date: 20120825
  Serious: Yes (Death, Other)
  Sender: FDA-Public Use
  Company Number: CA-ROCHE-1071972

PATIENT

DRUGS (2)
  1. TEMSIROLIMUS [Suspect]
     Indication: HEPATIC NEOPLASM MALIGNANT
     Dosage: DAY 1, 8, 15, 22
     Route: 042
  2. AVASTIN [Suspect]
     Indication: HEPATIC NEOPLASM MALIGNANT
     Dosage: DAY 1, 15
     Route: 042

REACTIONS (12)
  - MUCOSAL INFLAMMATION [None]
  - DYSPNOEA [None]
  - FATIGUE [None]
  - INFECTION [None]
  - DEATH [None]
  - DIARRHOEA [None]
  - HAEMORRHAGE [None]
  - FISTULA [None]
  - LEUKOPENIA [None]
  - ANAEMIA [None]
  - THROMBOCYTOPENIA [None]
  - NEUTROPENIA [None]
